FAERS Safety Report 24999257 (Version 4)
Quarter: 2025Q1

REPORT INFORMATION
  Report Type: Spontaneous
  Country: US (occurrence: US)
  Receive Date: 20250222
  Receipt Date: 20250307
  Transmission Date: 20250409
  Serious: No
  Sender: SANOFI AVENTIS
  Company Number: US-SANOFI-02407908

PATIENT
  Age: 66 Year
  Sex: Male

DRUGS (1)
  1. TOUJEO MAX [Suspect]
     Active Substance: INSULIN GLARGINE
     Indication: Type 2 diabetes mellitus
     Dosage: (40-50 U ), QD
     Route: 065

REACTIONS (3)
  - Blood glucose decreased [Unknown]
  - Incorrect dose administered by device [Unknown]
  - Device breakage [Unknown]
